FAERS Safety Report 9426288 (Version 2)
Quarter: 2017Q1

REPORT INFORMATION
  Report Type: Spontaneous
  Country: BR (occurrence: BR)
  Receive Date: 20130730
  Receipt Date: 20170202
  Transmission Date: 20170429
  Serious: Yes (Other)
  Sender: FDA-Public Use
  Company Number: BR-AMGEN-BRASP2012041456

PATIENT
  Age: 12 Year
  Sex: Male
  Weight: 34 kg

DRUGS (7)
  1. ENBREL [Suspect]
     Active Substance: ETANERCEPT
     Indication: JUVENILE IDIOPATHIC ARTHRITIS
     Dosage: UNK
     Route: 065
     Dates: start: 2009
  2. IBUPROFEN. [Concomitant]
     Active Substance: IBUPROFEN
     Dosage: 1 TABLET (300 MG), 3X/DAY
  3. FOLIC ACID. [Concomitant]
     Active Substance: FOLIC ACID
     Dosage: 1 TABLET (5 MG), ONCE WEEKLY
     Route: 048
  4. PREDNISOLONE. [Concomitant]
     Active Substance: PREDNISOLONE
     Dosage: 1 TABLET (5 MG), 1X/DAY
     Route: 048
  5. PREDNISONE. [Concomitant]
     Active Substance: PREDNISONE
     Dosage: 2.5 MG, 1 TABLET DAILY
  6. ENBREL [Suspect]
     Active Substance: ETANERCEPT
     Dosage: 25 MG, 1X/WEEK
     Route: 058
     Dates: start: 201205
  7. METHOTREXATE. [Concomitant]
     Active Substance: METHOTREXATE
     Dosage: 6 TABLETS OF 2.5 (UNIT NOT PROVIDED), ONCE WEEKLY
     Route: 048

REACTIONS (10)
  - Condition aggravated [Not Recovered/Not Resolved]
  - Skin depigmentation [Recovered/Resolved]
  - Gait disturbance [Not Recovered/Not Resolved]
  - Pyrexia [Unknown]
  - Pruritus [Recovered/Resolved]
  - Juvenile idiopathic arthritis [Not Recovered/Not Resolved]
  - Skin exfoliation [Recovered/Resolved]
  - Drug ineffective [Not Recovered/Not Resolved]
  - Injection site papule [Unknown]
  - Vomiting [Unknown]

NARRATIVE: CASE EVENT DATE: 20120623
